FAERS Safety Report 6654186-9 (Version None)
Quarter: 2010Q1

REPORT INFORMATION
  Report Type: 
  Country: None (occurrence: None)
  Receive Date: 20100326
  Receipt Date: 20100322
  Transmission Date: 20100710
  Serious: Yes (Death, Hospitalization)
  Sender: FDA-Public Use
  Company Number: DE-JNJFOC-20100210236

PATIENT
  Age: 29 Year
  Sex: Male
  Weight: 99.5 kg

DRUGS (4)
  1. RISPERDAL CONSTA [Suspect]
     Indication: SCHIZOPHRENIA
     Route: 030
  2. ZELDOX [Suspect]
     Indication: SCHIZOPHRENIA
     Route: 065
  3. FLUPENTIXOL [Suspect]
     Indication: SCHIZOPHRENIA
     Route: 065
  4. DIAZEPAM [Concomitant]
     Indication: SCHIZOPHRENIA

REACTIONS (2)
  - COMPLETED SUICIDE [None]
  - PSYCHOTIC DISORDER [None]
